FAERS Safety Report 8060386-6 (Version None)
Quarter: 2012Q1

REPORT INFORMATION
  Report Type: 
  Country: None (occurrence: None)
  Receive Date: 20120120
  Receipt Date: 20120118
  Transmission Date: 20120608
  Serious: Yes (Other)
  Sender: FDA-Public Use
  Company Number: US-PFIZER INC-2012015501

PATIENT
  Sex: Male
  Weight: 104 kg

DRUGS (1)
  1. CHANTIX [Suspect]
     Indication: SMOKING CESSATION THERAPY
     Dosage: 1 MG, 2X/DAY
     Route: 048
     Dates: start: 20111201

REACTIONS (5)
  - HEADACHE [None]
  - NIGHTMARE [None]
  - ABDOMINAL PAIN [None]
  - ALCOHOL POISONING [None]
  - ABNORMAL DREAMS [None]
